FAERS Safety Report 9197308 (Version 3)
Quarter: 2013Q2

REPORT INFORMATION
  Report Type: Report from Study
  Country: MX (occurrence: MX)
  Receive Date: 20130328
  Receipt Date: 20130617
  Transmission Date: 20140414
  Serious: Yes (Hospitalization, Other)
  Sender: FDA-Public Use
  Company Number: PHHY2013MX029182

PATIENT
  Age: 77 Year
  Sex: Male

DRUGS (8)
  1. ONBREZ [Suspect]
     Indication: BRONCHITIS CHRONIC
     Dosage: 150 UG, QD
     Dates: start: 201301
  2. ONBREZ [Suspect]
     Indication: OFF LABEL USE
  3. SPIRIVA [Concomitant]
     Dosage: UNK
  4. MIFLONIDE [Concomitant]
  5. FUROSEMIDE [Concomitant]
  6. AMIODARONE [Concomitant]
  7. ENALAPRIL [Concomitant]
  8. METFORMINE [Concomitant]

REACTIONS (7)
  - Cardiac failure [Recovering/Resolving]
  - Arrhythmia [Recovered/Resolved]
  - Cardiomyopathy [Unknown]
  - Atrial fibrillation [Unknown]
  - Dyspnoea [Unknown]
  - Hypertension [Unknown]
  - Chest discomfort [Unknown]
